FAERS Safety Report 7331801-8 (Version None)
Quarter: 2011Q1

REPORT INFORMATION
  Report Type: 
  Country: None (occurrence: None)
  Receive Date: 20110304
  Receipt Date: 20090909
  Transmission Date: 20110831
  Serious: No
  Sender: FDA-Public Use
  Company Number: US-PFIZER INC-2009244852

PATIENT
  Sex: Male
  Weight: 102.04 kg

DRUGS (4)
  1. EPANUTIN [Suspect]
     Indication: GRAND MAL CONVULSION
     Dosage: 300 MG/DAY
     Dates: start: 20090701
  2. DILANTIN [Suspect]
     Indication: CONVULSION
     Dosage: UNK
  3. MULTI-VITAMINS [Concomitant]
     Dosage: UNK
  4. ZOCOR [Concomitant]
     Dosage: UNK

REACTIONS (6)
  - DIZZINESS [None]
  - ANTICONVULSANT DRUG LEVEL INCREASED [None]
  - SOMNOLENCE [None]
  - FEELING ABNORMAL [None]
  - MALAISE [None]
  - INSOMNIA [None]
